FAERS Safety Report 7534716-5 (Version None)
Quarter: 2011Q2

REPORT INFORMATION
  Report Type: 
  Country: None (occurrence: None)
  Receive Date: 20110609
  Receipt Date: 20110418
  Transmission Date: 20111010
  Serious: Yes (Hospitalization, Other)
  Sender: FDA-Public Use
  Company Number: PHHY2010CA76351

PATIENT
  Sex: Female

DRUGS (2)
  1. AFINITOR [Suspect]
     Indication: NEUROENDOCRINE TUMOUR
     Dosage: 10 MG, QD
     Route: 048
     Dates: start: 20101015
  2. SANDOSTATIN LAR [Suspect]
     Dosage: 40 MG EVERY 4 WEEKS
     Route: 030
     Dates: start: 20091203

REACTIONS (7)
  - INFLUENZA [None]
  - DIARRHOEA [None]
  - CLOSTRIDIAL INFECTION [None]
  - GASTROENTERITIS VIRAL [None]
  - PARACENTESIS [None]
  - MALAISE [None]
  - ASTHENIA [None]
